FAERS Safety Report 7864470-9 (Version None)
Quarter: 2011Q4

REPORT INFORMATION
  Report Type: 
  Country: None (occurrence: None)
  Receive Date: 20111028
  Receipt Date: 20111019
  Transmission Date: 20120403
  Serious: Yes (Other)
  Sender: FDA-Public Use
  Company Number: PHHY2011CA74220

PATIENT
  Sex: Female

DRUGS (1)
  1. ZOLEDRONOC ACID [Suspect]
     Indication: OSTEOPOROSIS
     Dosage: UNK
     Route: 042
     Dates: start: 20110817

REACTIONS (11)
  - ABDOMINAL PAIN [None]
  - GASTRIC ULCER [None]
  - DIARRHOEA [None]
  - HEADACHE [None]
  - PYREXIA [None]
  - INFLUENZA LIKE ILLNESS [None]
  - CHILLS [None]
  - VOMITING [None]
  - GASTRITIS [None]
  - NAUSEA [None]
  - GASTROINTESTINAL INFLAMMATION [None]
